FAERS Safety Report 11023724 (Version 2)
Quarter: 2015Q2

REPORT INFORMATION
  Report Type: Spontaneous
  Country: US (occurrence: US)
  Receive Date: 20150413
  Receipt Date: 20150525
  Transmission Date: 20150821
  Serious: No
  Sender: FDA-Public Use
  Company Number: US-JNJFOC-20140106464

PATIENT
  Sex: Female
  Weight: 53.52 kg

DRUGS (3)
  1. LYRICA [Suspect]
     Active Substance: PREGABALIN
     Indication: HEADACHE
     Dosage: 2-3 TIMES A DAY
     Route: 065
  2. FLONASE [Concomitant]
     Active Substance: FLUTICASONE PROPIONATE
     Indication: ALLERGIC RESPIRATORY DISEASE
     Route: 045
  3. LEVAQUIN [Suspect]
     Active Substance: LEVOFLOXACIN
     Indication: HEADACHE
     Route: 065

REACTIONS (2)
  - Product use issue [Unknown]
  - Malaise [Unknown]
